FAERS Safety Report 8153711-9 (Version None)
Quarter: 2012Q1

REPORT INFORMATION
  Report Type: 
  Country: None (occurrence: None)
  Receive Date: 20120221
  Receipt Date: 20120217
  Transmission Date: 20120608
  Serious: Yes (Death, Hospitalization, Other)
  Sender: FDA-Public Use
  Company Number: GB-PFIZER INC-2012036492

PATIENT
  Age: 55 Year
  Sex: Female

DRUGS (6)
  1. FOLIC ACID [Concomitant]
  2. SIROLIMUS [Suspect]
     Dosage: 2 MG, UNK
     Route: 048
     Dates: start: 20120102, end: 20120112
  3. OMEPRAZOLE [Concomitant]
  4. PREDNISOLONE [Concomitant]
  5. RAMIPRIL [Concomitant]
  6. AMITRIPTYLINE [Concomitant]

REACTIONS (2)
  - MULTI-ORGAN FAILURE [None]
  - RENAL FAILURE [None]
